FAERS Safety Report 4632428-9 (Version None)
Quarter: 2005Q2

REPORT INFORMATION
  Report Type: 
  Country: None (occurrence: None)
  Receive Date: 20050411
  Receipt Date: 20050406
  Transmission Date: 20051028
  Serious: Yes (Other)
  Sender: FDA-Public Use
  Company Number: PHBS2005GR04844

PATIENT
  Age: 21 Year
  Sex: Male

DRUGS (2)
  1. TRILEPTAL [Suspect]
     Indication: CONVULSION
     Dosage: 1650-1800 MG/DAY
     Route: 048
  2. KEPPRA [Concomitant]
     Dosage: 3 G/DAY

REACTIONS (1)
  - URINARY RETENTION [None]
